FAERS Safety Report 21498764 (Version 1)
Quarter: 2022Q4

REPORT INFORMATION
  Report Type: Spontaneous
  Country: FR (occurrence: FR)
  Receive Date: 20221024
  Receipt Date: 20221024
  Transmission Date: 20230113
  Serious: Yes (Congenital Anomaly)
  Sender: FDA-Public Use
  Company Number: None

PATIENT
  Sex: Female
  Weight: 2.71 kg

DRUGS (7)
  1. ESOMEPRAZOLE [Suspect]
     Active Substance: ESOMEPRAZOLE
     Indication: Duodenogastric reflux
     Dosage: 20MG X 1 A DAY
     Route: 048
     Dates: start: 20210715, end: 20220415
  2. VALACYCLOVIR HYDROCHLORIDE [Suspect]
     Active Substance: VALACYCLOVIR HYDROCHLORIDE
     Indication: Opportunistic infection prophylaxis
     Dosage: 1000 MILLIGRAM, QD, 500MG X2 / DAY
     Route: 048
     Dates: start: 20210715, end: 20220415
  3. PROPRANOLOL [Suspect]
     Active Substance: PROPRANOLOL HYDROCHLORIDE
     Indication: Sinus tachycardia
     Dosage: 40 MILLIGRAM, QD
     Route: 048
     Dates: start: 20210715, end: 20220415
  4. LEVOTHYROXINE [Suspect]
     Active Substance: LEVOTHYROXINE
     Indication: Hypothyroidism
     Dosage: 87.5 MILLIGRAM, QD
     Route: 048
     Dates: start: 20210715, end: 20220415
  5. PENICILLIN V [Suspect]
     Active Substance: PENICILLIN V
     Indication: Opportunistic infection prophylaxis
     Dosage: 2 MEGA-INTERNATIONAL UNIT, QD, 1MU X 2 A DAY
     Route: 048
     Dates: start: 20210715, end: 20220415
  6. HYDROCORTISONE [Suspect]
     Active Substance: HYDROCORTISONE
     Indication: Graft versus host disease
     Dosage: 20 MILLIGRAM, QD, 10MG X 2 A DAY
     Route: 048
     Dates: start: 20210715, end: 20220415
  7. RUXOLITINIB [Suspect]
     Active Substance: RUXOLITINIB
     Indication: Graft versus host disease
     Dosage: 10 MILLIGRAM, QD, 5MG X 2 A DAY
     Route: 048
     Dates: start: 20210715, end: 20210812

REACTIONS (3)
  - Foetal growth restriction [Recovering/Resolving]
  - Oligohydramnios [Recovered/Resolved]
  - Foetal exposure during pregnancy [Unknown]

NARRATIVE: CASE EVENT DATE: 20220415
